FAERS Safety Report 19472356 (Version 1)
Quarter: 2021Q2

REPORT INFORMATION
  Report Type: Spontaneous
  Country: AU (occurrence: AU)
  Receive Date: 20210629
  Receipt Date: 20210629
  Transmission Date: 20210717
  Serious: Yes (Other)
  Sender: FDA-Public Use
  Company Number: AU-PFIZER INC-2021751536

PATIENT
  Age: 51 Year
  Sex: Female

DRUGS (3)
  1. RESERPINE. [Suspect]
     Active Substance: RESERPINE
     Indication: HYPERTENSION
     Dosage: 1 MG
     Route: 030
     Dates: start: 1985
  2. DIAZOXIDE [Suspect]
     Active Substance: DIAZOXIDE
     Indication: HYPERTENSION
     Dosage: 150 MG
     Route: 042
     Dates: start: 1985
  3. PRAZOSIN HCL [Suspect]
     Active Substance: PRAZOSIN HYDROCHLORIDE
     Indication: HYPERTENSION
     Dosage: 1 MG
     Route: 048
     Dates: start: 1985

REACTIONS (2)
  - Cerebral ischaemia [Unknown]
  - Condition aggravated [Unknown]

NARRATIVE: CASE EVENT DATE: 1985
